FAERS Safety Report 23488006 (Version 1)
Quarter: 2024Q1

REPORT INFORMATION
  Report Type: Report from Study
  Country: US (occurrence: US)
  Receive Date: 20240206
  Receipt Date: 20240206
  Transmission Date: 20240410
  Serious: Yes (Other)
  Sender: FDA-Public Use
  Company Number: US-ALXN-202402USA000084US

PATIENT

DRUGS (1)
  1. STRENSIQ [Suspect]
     Active Substance: ASFOTASE ALFA
     Indication: Product used for unknown indication
     Dosage: UNK
     Route: 065

REACTIONS (14)
  - Nephrocalcinosis [Unknown]
  - Blood phosphorus increased [Unknown]
  - Enuresis [Unknown]
  - Fatigue [Unknown]
  - Abdominal pain [Unknown]
  - Blood bicarbonate increased [Unknown]
  - Vitamin D decreased [Unknown]
  - Blood creatinine decreased [Unknown]
  - Urine analysis abnormal [Unknown]
  - Irritability [Unknown]
  - Skin disorder [Unknown]
  - White blood cells urine abnormal [Unknown]
  - Headache [Unknown]
  - Protein total decreased [Unknown]

NARRATIVE: CASE EVENT DATE: 20231208
